FAERS Safety Report 19651025 (Version 1)
Quarter: 2021Q3

REPORT INFORMATION
  Report Type: Other
  Country: CO (occurrence: CO)
  Receive Date: 20210802
  Receipt Date: 20210802
  Transmission Date: 20211014
  Serious: Yes (Hospitalization)
  Sender: FDA-Public Use
  Company Number: CO-ROCHE-2484244

PATIENT
  Sex: Male

DRUGS (1)
  1. XELODA [Suspect]
     Active Substance: CAPECITABINE
     Indication: PRODUCT USED FOR UNKNOWN INDICATION
     Route: 065

REACTIONS (8)
  - Hepatic infection bacterial [Unknown]
  - Irregular breathing [Unknown]
  - Metastases to lung [Unknown]
  - Blood pressure decreased [Unknown]
  - Illness [Unknown]
  - Escherichia bacteraemia [Unknown]
  - Metastases to liver [Unknown]
  - Pneumonia escherichia [Unknown]
